FAERS Safety Report 24378488 (Version 1)
Quarter: 2024Q3

REPORT INFORMATION
  Report Type: Spontaneous
  Country: US (occurrence: None)
  Receive Date: 20240927
  Receipt Date: 20240927
  Transmission Date: 20241016
  Serious: Yes (Other)
  Sender: Public
  Company Number: None

PATIENT
  Age: 96 Year
  Sex: Female
  Weight: 85.73 kg

DRUGS (16)
  1. ELMIRON [Suspect]
     Active Substance: PENTOSAN POLYSULFATE SODIUM
     Indication: Cystitis noninfective
     Dosage: 3 CAPSULES DAILY MOUTH
     Route: 048
     Dates: start: 2021
  2. METFORMIN [Concomitant]
     Active Substance: METFORMIN HYDROCHLORIDE
  3. simvasatin [Concomitant]
  4. LOSARTAN [Concomitant]
     Active Substance: LOSARTAN\LOSARTAN POTASSIUM
  5. CARVEDILOL [Concomitant]
     Active Substance: CARVEDILOL
  6. AMLODIPINE [Concomitant]
     Active Substance: AMLODIPINE BESYLATE
  7. gentera [Concomitant]
  8. SOLIFENACIN [Concomitant]
     Active Substance: SOLIFENACIN
  9. methonamine [Concomitant]
  10. hydroxygen [Concomitant]
  11. POTASSIUM CITRATE [Concomitant]
     Active Substance: POTASSIUM CITRATE
  12. MAGNESIUM OXIDE [Concomitant]
     Active Substance: MAGNESIUM OXIDE
  13. VITAMIN D3 [Concomitant]
     Active Substance: CHOLECALCIFEROL
  14. DIETARY SUPPLEMENT [Concomitant]
     Active Substance: DIETARY SUPPLEMENT
  15. ASPIRIN [Concomitant]
     Active Substance: ASPIRIN
  16. acetametophen [Concomitant]

REACTIONS (2)
  - Alopecia [None]
  - Diarrhoea [None]
